FAERS Safety Report 22228721 (Version 2)
Quarter: 2023Q2

REPORT INFORMATION
  Report Type: Spontaneous
  Country: AU (occurrence: AU)
  Receive Date: 20230419
  Receipt Date: 20230517
  Transmission Date: 20230722
  Serious: Yes (Other)
  Sender: FDA-Public Use
  Company Number: AU-ORGANON-O2304AUS001410

PATIENT
  Sex: Female
  Weight: 160 kg

DRUGS (1)
  1. ETONOGESTREL [Suspect]
     Active Substance: ETONOGESTREL
     Indication: Heavy menstrual bleeding
     Dosage: 1 IMPLANT OF 68 MG IN LEFT UPPER ARM
     Route: 059
     Dates: start: 20200218, end: 20230406

REACTIONS (5)
  - General anaesthesia [Unknown]
  - Device breakage [Recovered/Resolved]
  - Complication of device removal [Recovered/Resolved]
  - Product use in unapproved indication [Unknown]
  - Incorrect product administration duration [Unknown]

NARRATIVE: CASE EVENT DATE: 20200218
